FAERS Safety Report 14509301 (Version 2)
Quarter: 2018Q1

REPORT INFORMATION
  Report Type: Report from Study
  Country: GB (occurrence: GB)
  Receive Date: 20180209
  Receipt Date: 20180330
  Transmission Date: 20180509
  Serious: Yes (Other)
  Sender: FDA-Public Use
  Company Number: GB-TEVA-2018-GB-854437

PATIENT
  Age: 46 Year
  Sex: Female

DRUGS (1)
  1. COPAXONE [Suspect]
     Active Substance: GLATIRAMER ACETATE
     Indication: MULTIPLE SCLEROSIS
     Dosage: 20 MILLIGRAM/MILLILITERS DAILY;
     Route: 058
     Dates: start: 201604

REACTIONS (4)
  - Injection site bruising [Recovering/Resolving]
  - Injection site bruising [Unknown]
  - Venous perforation [Recovering/Resolving]
  - Extravasation blood [Recovering/Resolving]

NARRATIVE: CASE EVENT DATE: 201801
